FAERS Safety Report 7717005-5 (Version None)
Quarter: 2011Q3

REPORT INFORMATION
  Report Type: 
  Country: None (occurrence: None)
  Receive Date: 20110829
  Receipt Date: 20110824
  Transmission Date: 20111222
  Serious: Yes (Hospitalization)
  Sender: FDA-Public Use
  Company Number: US-ABBOTT-11P-163-0837982-00

PATIENT
  Age: 51 Year
  Sex: Female

DRUGS (17)
  1. HUMIRA [Suspect]
     Indication: CROHN'S DISEASE
     Dates: start: 20110601
  2. OMEPRAZOLE [Concomitant]
     Indication: GASTROOESOPHAGEAL REFLUX DISEASE
  3. HUMIRA [Suspect]
     Dates: start: 20110601, end: 20110601
  4. REGLAN [Suspect]
     Indication: NAUSEA
  5. HYDROCODONE BITARTRATE [Concomitant]
     Indication: ARTHRITIS
     Dosage: 10-50 MG EVERY SIX HOURS
  6. FUROSEMIDE [Concomitant]
     Indication: OEDEMA PERIPHERAL
  7. PENTASA [Concomitant]
     Indication: PRODUCT USED FOR UNKNOWN INDICATION
  8. METOPROLOL [Concomitant]
     Indication: HYPERTENSION
  9. MULTI-VITAMIN [Concomitant]
     Indication: PRODUCT USED FOR UNKNOWN INDICATION
  10. CALCIUM CARBONATE [Concomitant]
     Indication: PRODUCT USED FOR UNKNOWN INDICATION
  11. HUMIRA [Suspect]
     Dates: start: 20110601, end: 20110601
  12. XANAX [Concomitant]
     Indication: ANXIETY
     Dosage: 3 IN 1 DAY AS NEEDED
  13. FISH OIL [Concomitant]
     Indication: PRODUCT USED FOR UNKNOWN INDICATION
  14. ASPIRIN [Concomitant]
     Indication: PROPHYLAXIS
  15. PROZAC [Concomitant]
     Indication: DEPRESSION
  16. VIT D [Concomitant]
     Indication: PRODUCT USED FOR UNKNOWN INDICATION
  17. PREDNISONE [Concomitant]
     Indication: PRODUCT USED FOR UNKNOWN INDICATION

REACTIONS (12)
  - CONFUSIONAL STATE [None]
  - NAUSEA [None]
  - ARTHRALGIA [None]
  - SKIN LESION [None]
  - URINARY TRACT INFECTION [None]
  - INTENTIONAL OVERDOSE [None]
  - VOMITING [None]
  - DIARRHOEA [None]
  - DEPRESSION [None]
  - SUICIDE ATTEMPT [None]
  - ASTHENIA [None]
  - FEELING COLD [None]
